FAERS Safety Report 22273022 (Version 1)
Quarter: 2023Q2

REPORT INFORMATION
  Report Type: Spontaneous
  Country: IN (occurrence: IN)
  Receive Date: 20230502
  Receipt Date: 20230502
  Transmission Date: 20230722
  Serious: Yes (Other)
  Sender: FDA-Public Use
  Company Number: IN-MYLANLABS-2023M1045276

PATIENT
  Age: 21 Year
  Sex: Male
  Weight: 72 kg

DRUGS (5)
  1. TACROLIMUS [Suspect]
     Active Substance: TACROLIMUS
     Indication: Focal segmental glomerulosclerosis
     Dosage: 3 MILLIGRAM, BID
     Route: 065
     Dates: start: 2021
  2. PREDNISOLONE [Suspect]
     Active Substance: PREDNISOLONE
     Indication: Focal segmental glomerulosclerosis
     Dosage: 70 MILLIGRAM, QD
     Route: 065
     Dates: start: 2021
  3. PREDNISOLONE [Suspect]
     Active Substance: PREDNISOLONE
     Dosage: 10 MILLIGRAM, QD
     Route: 065
     Dates: start: 2021
  4. RITUXIMAB [Suspect]
     Active Substance: RITUXIMAB
     Indication: Focal segmental glomerulosclerosis
     Dosage: UNK, 4 DOSES (INFUSION)
     Route: 042
     Dates: start: 202111
  5. HEPARIN [Concomitant]
     Active Substance: HEPARIN SODIUM
     Indication: Product used for unknown indication
     Dosage: UNK
     Route: 065

REACTIONS (2)
  - Therapy non-responder [Unknown]
  - Off label use [Unknown]

NARRATIVE: CASE EVENT DATE: 20210101
